FAERS Safety Report 24338328 (Version 2)
Quarter: 2025Q2

REPORT INFORMATION
  Report Type: Spontaneous
  Country: US (occurrence: US)
  Receive Date: 20240919
  Receipt Date: 20250429
  Transmission Date: 20250717
  Serious: Yes (Other)
  Sender: JUBILANT
  Company Number: US-JUBILANT CADISTA PHARMACEUTICALS-2024US001320

PATIENT
  Age: 56 Year

DRUGS (5)
  1. SPIRONOLACTONE [Suspect]
     Active Substance: SPIRONOLACTONE
     Indication: Hormone therapy
     Route: 065
  2. SPIRONOLACTONE [Suspect]
     Active Substance: SPIRONOLACTONE
     Indication: Gender reassignment therapy
  3. ESTROGENS [Suspect]
     Active Substance: ESTROGENS
     Indication: Hormone therapy
     Route: 065
  4. ESTROGENS [Suspect]
     Active Substance: ESTROGENS
     Indication: Gender reassignment therapy
  5. APIXABAN [Concomitant]
     Active Substance: APIXABAN
     Indication: Anticoagulant therapy
     Route: 065

REACTIONS (2)
  - Embolism venous [Unknown]
  - Orthostatic hypotension [Unknown]
